FAERS Safety Report 19931520 (Version 2)
Quarter: 2021Q4

REPORT INFORMATION
  Report Type: Spontaneous
  Country: CA (occurrence: CA)
  Receive Date: 20211007
  Receipt Date: 20211019
  Transmission Date: 20220303
  Serious: Yes (Hospitalization, Other)
  Sender: FDA-Public Use
  Company Number: CA-TEVA-2021-CA-1961124

PATIENT
  Age: 86 Year
  Sex: Female

DRUGS (13)
  1. AZATHIOPRINE [Suspect]
     Active Substance: AZATHIOPRINE
     Indication: Sjogren^s syndrome
     Dosage: 50MG
     Route: 065
  2. PREDNISOLONE [Suspect]
     Active Substance: PREDNISOLONE
     Indication: Transplant rejection
     Dosage: 6 TIMES DAILY
     Route: 061
  3. PREDNISOLONE [Suspect]
     Active Substance: PREDNISOLONE
     Indication: Corneal oedema
     Dosage: 2 MONTHS POSTOPERATIVELY 1% WAS ADDED 6 TIMES DAILY
     Route: 061
  4. PREDNISOLONE [Suspect]
     Active Substance: PREDNISOLONE
     Indication: Neovascularisation
  5. LOTEPREDNOL [Suspect]
     Active Substance: LOTEPREDNOL
     Indication: Corneal oedema
     Dosage: 0.5%
     Route: 061
  6. TACROLIMUS [Suspect]
     Active Substance: TACROLIMUS
     Indication: Transplant rejection
     Dosage: 0.1% 4 TIMES DAILY
     Route: 061
  7. TACROLIMUS [Suspect]
     Active Substance: TACROLIMUS
     Indication: Corneal oedema
  8. TACROLIMUS [Suspect]
     Active Substance: TACROLIMUS
     Indication: Neovascularisation
  9. BEVACIZUMAB [Concomitant]
     Active Substance: BEVACIZUMAB
     Indication: Age-related macular degeneration
     Dosage: INTRAVITREAL
     Route: 050
  10. AMPHOTERICIN B [Concomitant]
     Active Substance: AMPHOTERICIN B
     Indication: Keratitis fungal
     Dosage: EVERY 1-2 HOURS IN THE RIGHT EYE
     Route: 061
  11. AMPHOTERICIN B [Concomitant]
     Active Substance: AMPHOTERICIN B
     Dosage: POSTOPERATIVELY, 0.15% DAILY
     Route: 061
  12. VORICONAZOLE [Concomitant]
     Active Substance: VORICONAZOLE
     Indication: Keratitis fungal
     Route: 061
  13. VORICONAZOLE [Concomitant]
     Active Substance: VORICONAZOLE
     Dosage: POSTOPERATIVELY, SHE CONTINUED TOPICAL 1% DAILY HOURLY FOR 1 WEEK AND THEN 4 TIMES DAILY
     Route: 061

REACTIONS (2)
  - Keratitis fungal [Recovered/Resolved]
  - Drug ineffective [Unknown]
